FAERS Safety Report 18579906 (Version 4)
Quarter: 2020Q4

REPORT INFORMATION
  Report Type: Report from Study
  Country: DE (occurrence: DE)
  Receive Date: 20201204
  Receipt Date: 20201221
  Transmission Date: 20210114
  Serious: Yes (Hospitalization, Other)
  Sender: FDA-Public Use
  Company Number: DE-BRISTOL-MYERS SQUIBB COMPANY-BMS-2020-067549

PATIENT
  Age: 56 Year
  Sex: Female
  Weight: 64 kg

DRUGS (37)
  1. NIVOLUMAB [Suspect]
     Active Substance: NIVOLUMAB
     Dosage: 190 MILLIGRAM, Q2WK
     Route: 065
     Dates: start: 20181114, end: 20181114
  2. NIVOLUMAB [Suspect]
     Active Substance: NIVOLUMAB
     Dosage: 190 MILLIGRAM, Q2WK
     Route: 065
     Dates: start: 20190204, end: 20190204
  3. NIVOLUMAB [Suspect]
     Active Substance: NIVOLUMAB
     Dosage: 190 MILLIGRAM, Q2WK
     Route: 065
     Dates: start: 20190322, end: 20190322
  4. NIVOLUMAB [Suspect]
     Active Substance: NIVOLUMAB
     Dosage: 185 MILLIGRAM, Q2WK
     Route: 065
     Dates: start: 20190701, end: 20190701
  5. NIVOLUMAB [Suspect]
     Active Substance: NIVOLUMAB
     Indication: LUNG NEOPLASM MALIGNANT
     Dosage: 190 MILLIGRAM, Q2WK
     Route: 065
     Dates: start: 20181018, end: 20181018
  6. NIVOLUMAB [Suspect]
     Active Substance: NIVOLUMAB
     Dosage: 200 MILLIGRAM, Q2WK
     Route: 065
     Dates: start: 20190103, end: 20190103
  7. NIVOLUMAB [Suspect]
     Active Substance: NIVOLUMAB
     Dosage: 195 MILLIGRAM, Q2WK
     Route: 065
     Dates: start: 20190118, end: 20190118
  8. NIVOLUMAB [Suspect]
     Active Substance: NIVOLUMAB
     Dosage: 190 MILLIGRAM, Q2WK
     Route: 065
     Dates: start: 20190222, end: 20190222
  9. NIVOLUMAB [Suspect]
     Active Substance: NIVOLUMAB
     Dosage: 190 MILLIGRAM, Q2WK
     Route: 065
     Dates: start: 20190417, end: 20190417
  10. IPILIMUMAB [Suspect]
     Active Substance: IPILIMUMAB
     Indication: LUNG NEOPLASM MALIGNANT
     Dosage: 180 MILLIGRAM, Q3WK
     Route: 065
     Dates: start: 20200807, end: 20200807
  11. IBUPROFEN. [Concomitant]
     Active Substance: IBUPROFEN
     Indication: PAIN
     Dosage: 1.8 G  PER NEEDED
     Route: 048
     Dates: start: 202008
  12. NIVOLUMAB [Suspect]
     Active Substance: NIVOLUMAB
     Dosage: 196 MILLIGRAM, Q2WK
     Route: 065
     Dates: start: 20181130, end: 20181130
  13. NIVOLUMAB [Suspect]
     Active Substance: NIVOLUMAB
     Dosage: 190 MILLIGRAM, Q2WK
     Route: 065
     Dates: start: 20190503, end: 20190503
  14. NIVOLUMAB [Suspect]
     Active Substance: NIVOLUMAB
     Dosage: 190 MILLIGRAM, Q2WK
     Route: 065
     Dates: start: 20190517, end: 20190517
  15. NIVOLUMAB [Suspect]
     Active Substance: NIVOLUMAB
     Dosage: 60 MILLIGRAM, Q3WK
     Route: 065
     Dates: start: 20200925, end: 20200925
  16. NIVOLUMAB [Suspect]
     Active Substance: NIVOLUMAB
     Dosage: 480 MILLIGRAM, Q4WK
     Route: 065
     Dates: start: 20201106, end: 20201106
  17. IPILIMUMAB [Suspect]
     Active Substance: IPILIMUMAB
     Dosage: 180 MILLIGRAM, Q3WK
     Route: 065
     Dates: start: 20200925, end: 20200925
  18. NOVALGIN [CAFFEINE;PARACETAMOL;PROPYPHENAZONE] [Concomitant]
     Active Substance: ACETAMINOPHEN\CAFFEINE\PROPYPHENAZONE
     Indication: HEADACHE
     Dosage: 1 TABLET, PER NEEDED
     Route: 048
     Dates: start: 20191015, end: 20191018
  19. NIVOLUMAB [Suspect]
     Active Substance: NIVOLUMAB
     Dosage: 185 MILLIGRAM, Q2WK
     Route: 065
     Dates: start: 20190614, end: 20190614
  20. NIVOLUMAB [Suspect]
     Active Substance: NIVOLUMAB
     Dosage: 185 MILLIGRAM, Q2WK
     Route: 065
     Dates: start: 20190802, end: 20190802
  21. NIVOLUMAB [Suspect]
     Active Substance: NIVOLUMAB
     Dosage: 480 ABSENT, Q4WK
     Route: 065
     Dates: start: 20201204, end: 20201204
  22. NIVOLUMAB [Suspect]
     Active Substance: NIVOLUMAB
     Dosage: 190 MILLIGRAM, Q2WK
     Route: 065
     Dates: start: 20190405, end: 20190405
  23. AZITHROMYCIN ANHYDROUS. [Concomitant]
     Active Substance: AZITHROMYCIN ANHYDROUS
     Indication: PHARYNGITIS
     Dosage: 1 UNK, QD
     Route: 048
     Dates: start: 20190318, end: 20190322
  24. IMODIUM [Concomitant]
     Active Substance: LOPERAMIDE HYDROCHLORIDE
     Indication: DIARRHOEA
     Dosage: 1 TABLET, PER NEEDED
     Route: 048
     Dates: start: 20191028, end: 201912
  25. NIVOLUMAB [Suspect]
     Active Substance: NIVOLUMAB
     Dosage: 185 MILLIGRAM, Q2WK
     Route: 065
     Dates: start: 20190531, end: 20190531
  26. NIVOLUMAB [Suspect]
     Active Substance: NIVOLUMAB
     Dosage: 185 MILLIGRAM, Q2WK
     Route: 065
     Dates: start: 20190816, end: 20190816
  27. NIVOLUMAB [Suspect]
     Active Substance: NIVOLUMAB
     Dosage: 186 MILLIGRAM, Q2WK
     Route: 065
     Dates: start: 20190830, end: 20190830
  28. NIVOLUMAB [Suspect]
     Active Substance: NIVOLUMAB
     Dosage: 60 MILLIGRAM, Q3WK
     Route: 065
     Dates: start: 20200904, end: 20200904
  29. IPILIMUMAB [Suspect]
     Active Substance: IPILIMUMAB
     Dosage: 180 MILLIGRAM, Q3WK
     Route: 065
     Dates: start: 20200904, end: 20200904
  30. NIVOLUMAB [Suspect]
     Active Substance: NIVOLUMAB
     Indication: MALIGNANT MELANOMA
     Dosage: 190 MILLIGRAM, Q2WK
     Route: 065
     Dates: start: 20181005, end: 20181005
  31. NIVOLUMAB [Suspect]
     Active Substance: NIVOLUMAB
     Dosage: 195 MILLIGRAM, Q2WK
     Route: 065
     Dates: start: 20181214, end: 20181214
  32. NIVOLUMAB [Suspect]
     Active Substance: NIVOLUMAB
     Dosage: 60 MILLIGRAM, Q3WK
     Route: 065
     Dates: start: 20200807, end: 20200807
  33. NIVOLUMAB [Suspect]
     Active Substance: NIVOLUMAB
     Dosage: 192 MILLIGRAM, Q2WK
     Route: 065
     Dates: start: 20181031, end: 20181031
  34. NIVOLUMAB [Suspect]
     Active Substance: NIVOLUMAB
     Dosage: 190 MILLIGRAM, Q2WK
     Route: 065
     Dates: start: 20190308, end: 20190308
  35. NIVOLUMAB [Suspect]
     Active Substance: NIVOLUMAB
     Dosage: 185 MILLIGRAM, Q2WK
     Route: 065
     Dates: start: 20190719, end: 20190719
  36. NIVOLUMAB [Suspect]
     Active Substance: NIVOLUMAB
     Dosage: 60 MILLIGRAM, Q3WK
     Route: 065
     Dates: start: 20200717, end: 20200717
  37. IPILIMUMAB [Suspect]
     Active Substance: IPILIMUMAB
     Indication: MALIGNANT MELANOMA
     Dosage: 180 MILLIGRAM, Q3WK
     Route: 065
     Dates: start: 20200717, end: 20200717

REACTIONS (7)
  - Pneumonia [Unknown]
  - Chronic obstructive pulmonary disease [Recovering/Resolving]
  - Fatigue [Unknown]
  - Urinary tract infection [Unknown]
  - Mucosal dryness [Unknown]
  - Sarcoidosis [Unknown]
  - Prescribed underdose [Unknown]

NARRATIVE: CASE EVENT DATE: 20200814
